FAERS Safety Report 6877493-3 (Version None)
Quarter: 2010Q3

REPORT INFORMATION
  Report Type: 
  Country: None (occurrence: None)
  Receive Date: 20100727
  Receipt Date: 20091009
  Transmission Date: 20110219
  Serious: No
  Sender: FDA-Public Use
  Company Number: US-ABBOTT-09P-163-0602321-00

PATIENT
  Sex: Female
  Weight: 100.79 kg

DRUGS (2)
  1. SYNTHROID [Suspect]
     Indication: HYPOTHYROIDISM
     Route: 048
     Dates: start: 20010101
  2. LASIX [Concomitant]
     Indication: OEDEMA
     Route: 048

REACTIONS (3)
  - ALOPECIA [None]
  - DIARRHOEA [None]
  - HYPERSOMNIA [None]
